FAERS Safety Report 20524181 (Version 4)
Quarter: 2022Q2

REPORT INFORMATION
  Report Type: Other
  Country: IT (occurrence: IT)
  Receive Date: 20220228
  Receipt Date: 20220513
  Transmission Date: 20220721
  Serious: Yes (Disabling, Other)
  Sender: FDA-Public Use
  Company Number: IT-CELLTRION INC.-2022IT002072

PATIENT

DRUGS (2)
  1. RITUXIMAB [Suspect]
     Active Substance: RITUXIMAB
     Indication: Chronic leukaemia
     Dosage: 1000 MG
     Route: 065
     Dates: end: 20210913
  2. VENCLEXTA [Suspect]
     Active Substance: VENETOCLAX
     Indication: Chronic leukaemia
     Dosage: 400 MG, QD
     Route: 065

REACTIONS (3)
  - Hemianopia [Unknown]
  - Progressive multifocal leukoencephalopathy [Unknown]
  - Asthenia [Unknown]

NARRATIVE: CASE EVENT DATE: 20211005
